FAERS Safety Report 8494772-7 (Version None)
Quarter: 2012Q3

REPORT INFORMATION
  Report Type: 
  Country: None (occurrence: None)
  Receive Date: 20120709
  Receipt Date: 20120704
  Transmission Date: 20120928
  Serious: Yes (Life-Threatening)
  Sender: FDA-Public Use
  Company Number: IT-ASTRAZENECA-2012SE45160

PATIENT
  Age: 53 Year
  Sex: Male

DRUGS (7)
  1. LIDOCAINE [Suspect]
     Indication: LOCAL ANAESTHESIA
     Route: 065
  2. PROPOFOL [Concomitant]
     Dosage: 0.1 TO 0.5 MG/KG/H
     Route: 065
  3. FENTANYL [Concomitant]
     Route: 065
  4. FENTANYL [Concomitant]
     Route: 065
  5. LIDOCAINE [Suspect]
     Route: 065
  6. ROPIVACAINE HYDROCHLORIDE [Suspect]
     Indication: LOCAL ANAESTHESIA
     Route: 065
  7. PROPOFOL [Concomitant]
     Dosage: 0.5 MG/KG  IN 2 BOLI
     Route: 065

REACTIONS (1)
  - ATRIOVENTRICULAR BLOCK COMPLETE [None]
